FAERS Safety Report 11986548 (Version 1)
Quarter: 2016Q1

REPORT INFORMATION
  Report Type: Spontaneous
  Country: US (occurrence: None)
  Receive Date: 20160201
  Receipt Date: 20160201
  Transmission Date: 20160526
  Serious: Yes (Death)
  Sender: FDA-Public Use
  Company Number: None

PATIENT
  Age: 55 Year
  Sex: Female

DRUGS (1)
  1. STIVARGA [Suspect]
     Active Substance: REGORAFENIB
     Indication: COLON CANCER
     Dosage: 4 TABLETS  3 WEEKS ON AND 1 WEEK OFF  ORAL
     Route: 048
     Dates: start: 20150313, end: 20150930

REACTIONS (1)
  - Colon cancer [None]

NARRATIVE: CASE EVENT DATE: 20150930
